FAERS Safety Report 15479170 (Version 2)
Quarter: 2018Q4

REPORT INFORMATION
  Report Type: Spontaneous
  Country: US (occurrence: US)
  Receive Date: 20181009
  Receipt Date: 20181022
  Transmission Date: 20190205
  Serious: Yes (Other)
  Sender: FDA-Public Use
  Company Number: US-PURDUE-USA-2018-0144916

PATIENT
  Age: 74 Year
  Sex: Female

DRUGS (2)
  1. SENOKOT [Suspect]
     Active Substance: SENNOSIDES
     Indication: HAEMORRHOIDAL HAEMORRHAGE
     Dosage: 2 TABLET, EVERY 2 WEEKS
     Route: 048
  2. SENOKOT [Suspect]
     Active Substance: SENNOSIDES
     Indication: RECTAL TENESMUS
     Dosage: 2 TABLET, EVERY 2 WEEKS
     Route: 048
     Dates: start: 201809

REACTIONS (5)
  - Eye operation [Recovered/Resolved]
  - Therapeutic response unexpected [Unknown]
  - Unevaluable event [Unknown]
  - Sciatica [Unknown]
  - Product packaging quantity issue [Unknown]

NARRATIVE: CASE EVENT DATE: 201809
